FAERS Safety Report 6741689-1 (Version None)
Quarter: 2010Q2

REPORT INFORMATION
  Report Type: 
  Country: None (occurrence: None)
  Receive Date: 20100526
  Receipt Date: 20100514
  Transmission Date: 20101027
  Serious: Yes (Other)
  Sender: FDA-Public Use
  Company Number: US-AMGEN-QUU412425

PATIENT
  Sex: Female

DRUGS (1)
  1. ENBREL [Suspect]
     Indication: RHEUMATOID ARTHRITIS
     Route: 058
     Dates: start: 20051201

REACTIONS (7)
  - EYELID OEDEMA [None]
  - EYELIDS PRURITUS [None]
  - MALAISE [None]
  - PRURITUS GENERALISED [None]
  - RASH PRURITIC [None]
  - TONGUE OEDEMA [None]
  - TONGUE ULCERATION [None]
